FAERS Safety Report 6976166-6 (Version None)
Quarter: 2010Q3

REPORT INFORMATION
  Report Type: 
  Country: None (occurrence: None)
  Receive Date: 20100910
  Receipt Date: 20100820
  Transmission Date: 20110219
  Serious: Yes (Life-Threatening, Hospitalization)
  Sender: FDA-Public Use
  Company Number: PL-ASTRAZENECA-2010SE42169

PATIENT
  Age: 36 Day
  Sex: Male
  Weight: 2.4 kg

DRUGS (12)
  1. MEROPENEM [Suspect]
     Indication: INFECTION
     Dosage: 3X30 MG/KG/24 H
     Route: 042
     Dates: start: 20100316, end: 20100325
  2. MEROPENEM [Suspect]
     Indication: PNEUMONIA
     Dosage: 3X30 MG/KG/24 H
     Route: 042
     Dates: start: 20100316, end: 20100325
  3. TARGOCID [Suspect]
     Indication: INFECTION
     Dosage: 8MG/KG/24 H
     Route: 042
     Dates: start: 20100316, end: 20100325
  4. TARGOCID [Suspect]
     Dosage: 8MG/KG/24 H
     Route: 042
     Dates: start: 20100316, end: 20100325
  5. AMPICYLINA [Concomitant]
     Indication: INFECTION
     Dosage: 50 MG/KG
     Route: 042
     Dates: start: 20100310, end: 20100316
  6. AMPICYLINA [Concomitant]
     Indication: PNEUMONIA
     Dosage: 50 MG/KG
     Route: 042
     Dates: start: 20100310, end: 20100316
  7. METRONIDAZOLE [Concomitant]
     Indication: INFECTION
     Dosage: 15 MG/KG
     Route: 042
     Dates: start: 20100310, end: 20100316
  8. METRONIDAZOLE [Concomitant]
     Indication: PNEUMONIA
     Dosage: 15 MG/KG
     Route: 042
     Dates: start: 20100310, end: 20100316
  9. CIPROFLOKSACYNA [Concomitant]
     Indication: INFECTION
     Dosage: 5X5MG/KG/24H
     Route: 042
     Dates: end: 20100325
  10. CIPROFLOKSACYNA [Concomitant]
     Indication: PNEUMONIA
     Dosage: 5X5MG/KG/24H
     Route: 042
     Dates: end: 20100325
  11. NETILMYCYNA [Concomitant]
     Indication: INFECTION
     Dosage: 4 MG/KG
     Route: 042
     Dates: start: 20100310, end: 20100401
  12. NETILMYCYNA [Concomitant]
     Indication: PNEUMONIA
     Dosage: 4 MG/KG
     Route: 042
     Dates: start: 20100310, end: 20100401

REACTIONS (2)
  - LIVER INJURY [None]
  - SEPSIS [None]
